FAERS Safety Report 10958861 (Version 2)
Quarter: 2015Q1

REPORT INFORMATION
  Report Type: Spontaneous
  Country: PE (occurrence: PE)
  Receive Date: 20150327
  Receipt Date: 20150327
  Transmission Date: 20150721
  Serious: Yes (Death, Hospitalization, Other)
  Sender: FDA-Public Use
  Company Number: PE-009507513-1503PER011730

PATIENT
  Age: 70 Year
  Sex: Male

DRUGS (1)
  1. RINELON 50 MCG/DOSES NASAL SPRAY SUSPENSION [Suspect]
     Active Substance: MOMETASONE FUROATE
     Indication: RHINITIS
     Dosage: TWICE DAILY (MORNING AND EVENING)
     Route: 045
     Dates: start: 20141120, end: 201501

REACTIONS (3)
  - Sepsis [Fatal]
  - Pulmonary embolism [Unknown]
  - Pneumonia [Unknown]

NARRATIVE: CASE EVENT DATE: 201502
